FAERS Safety Report 7866311-2 (Version None)
Quarter: 2011Q4

REPORT INFORMATION
  Report Type: 
  Country: None (occurrence: None)
  Receive Date: 20111028
  Receipt Date: 20110527
  Transmission Date: 20120403
  Serious: No
  Sender: FDA-Public Use
  Company Number: US-GLAXOSMITHKLINE-A0929527A

PATIENT
  Age: 84 Year
  Sex: Male

DRUGS (4)
  1. TEMAZEPAM [Concomitant]
  2. LEVOTHYROXINE SODIUM [Concomitant]
  3. ADVAIR DISKUS 100/50 [Suspect]
     Indication: EMPHYSEMA
     Dosage: 1PUFF TWICE PER DAY
     Route: 055
  4. SERTRALINE HYDROCHLORIDE [Concomitant]

REACTIONS (1)
  - ORAL FUNGAL INFECTION [None]
